FAERS Safety Report 23761536 (Version 1)
Quarter: 2024Q2

REPORT INFORMATION
  Report Type: Spontaneous
  Country: US (occurrence: None)
  Receive Date: 20240418
  Receipt Date: 20240418
  Transmission Date: 20240716
  Serious: No
  Sender: FDA-Public Use
  Company Number: None

PATIENT
  Sex: Male

DRUGS (1)
  1. TETRABENAZINE [Suspect]
     Active Substance: TETRABENAZINE
     Indication: Dystonia
     Dosage: 75MG 3 TIMES A DAY J-TUBE
     Route: 050
     Dates: start: 202311

REACTIONS (3)
  - Product use issue [None]
  - Insurance issue [None]
  - Movement disorder [None]
